FAERS Safety Report 8232827-2 (Version None)
Quarter: 2012Q1

REPORT INFORMATION
  Report Type: 
  Country: None (occurrence: None)
  Receive Date: 20120323
  Receipt Date: 20120314
  Transmission Date: 20120608
  Serious: Yes (Other)
  Sender: FDA-Public Use
  Company Number: US-ASTRAZENECA-2012SE17921

PATIENT
  Age: 50 Year
  Sex: Female
  Weight: 65.8 kg

DRUGS (30)
  1. ESTRADIOL [Suspect]
  2. SPIRIVA [Suspect]
     Indication: ASTHMA
  3. ADVAIR DISKUS 100/50 [Suspect]
     Indication: ASTHMA
  4. UNSPECIFIED NEBULIZER [Suspect]
     Indication: EMPHYSEMA
  5. SYMBICORT [Suspect]
     Indication: BRONCHITIS
     Dosage: UNKNOWN FREQUENCY
     Route: 055
  6. SYMBICORT [Suspect]
     Indication: EMPHYSEMA
     Dosage: UNKNOWN FREQUENCY
     Route: 055
  7. SPIRIVA [Suspect]
     Indication: BRONCHITIS
  8. UNSPECIFIED NEBULIZER [Suspect]
     Indication: ASTHMA
  9. UNSPECIFIED PATCH [Suspect]
  10. NORVASC [Suspect]
     Indication: HYPERTENSION
  11. ADVAIR DISKUS 100/50 [Suspect]
     Indication: BRONCHITIS
  12. UNSPECIFIED NEBULIZER [Suspect]
     Indication: BRONCHITIS
  13. CHANTIX [Suspect]
     Indication: EMPHYSEMA
  14. SEROQUEL [Suspect]
     Indication: BIPOLAR I DISORDER
     Route: 048
     Dates: start: 20060101
  15. TRAZODONE HCL [Suspect]
  16. COMBIVENT [Suspect]
  17. SYMBICORT [Suspect]
     Indication: ASTHMA
     Dosage: UNKNOWN FREQUENCY
     Route: 055
  18. LISINOPRIL [Suspect]
     Indication: HYPERTENSION
     Route: 048
  19. DEPAKOTE [Suspect]
  20. NIASPAN [Suspect]
     Indication: HYPERCHOLESTEROLAEMIA
  21. SPIRIVA [Suspect]
     Indication: EMPHYSEMA
  22. SEROQUEL [Suspect]
     Indication: POSTPARTUM STRESS DISORDER
     Route: 048
     Dates: start: 20060101
  23. ASPIRIN [Suspect]
  24. COREG [Suspect]
  25. MEDROXYPROGESTERONE [Suspect]
  26. INDERAL [Suspect]
  27. GEODON [Suspect]
  28. ADVAIR DISKUS 100/50 [Suspect]
     Indication: EMPHYSEMA
  29. CHANTIX [Suspect]
     Indication: ASTHMA
  30. CHANTIX [Suspect]
     Indication: BRONCHITIS

REACTIONS (12)
  - NAUSEA [None]
  - SOMNOLENCE [None]
  - IRRITABILITY [None]
  - NERVOUSNESS [None]
  - DIZZINESS [None]
  - STRESS [None]
  - MEMORY IMPAIRMENT [None]
  - DISORIENTATION [None]
  - AGITATION [None]
  - DRY MOUTH [None]
  - MIGRAINE [None]
  - GASTRIC DISORDER [None]
